FAERS Safety Report 10204052 (Version 2)
Quarter: 2014Q3

REPORT INFORMATION
  Report Type: Spontaneous
  Country: US (occurrence: US)
  Receive Date: 20140529
  Receipt Date: 20140703
  Transmission Date: 20150326
  Serious: Yes (Hospitalization, Other)
  Sender: FDA-Public Use
  Company Number: US-BAYER-2014-077576

PATIENT
  Age: 29 Year
  Sex: Female
  Weight: 66.85 kg

DRUGS (1)
  1. MIRENA [Suspect]
     Active Substance: LEVONORGESTREL
     Indication: CONTRACEPTION
     Dosage: 20 MCG/24HR, CONT
     Route: 015
     Dates: start: 20140411, end: 20140414

REACTIONS (7)
  - Appendicitis [None]
  - Adnexa uteri cyst [None]
  - Streptococcal bacteraemia [None]
  - Sepsis [None]
  - Pelvic pain [None]
  - Appendix disorder [None]
  - Pelvic inflammatory disease [None]

NARRATIVE: CASE EVENT DATE: 20140413
